FAERS Safety Report 21392956 (Version 1)
Quarter: 2022Q3

REPORT INFORMATION
  Report Type: Spontaneous
  Country: US (occurrence: None)
  Receive Date: 20220928
  Receipt Date: 20220928
  Transmission Date: 20221026
  Serious: Yes (Hospitalization, Other)
  Sender: FDA-Public Use
  Company Number: None

PATIENT
  Age: 56 Year
  Sex: Female
  Weight: 85.2 kg

DRUGS (1)
  1. SOLIRIS [Suspect]
     Active Substance: ECULIZUMAB
     Indication: Atypical haemolytic uraemic syndrome
     Dosage: FREQUENCY : WEEKLY;?
     Route: 042

REACTIONS (10)
  - Rash pustular [None]
  - Stomatitis [None]
  - Mucosal inflammation [None]
  - Scab [None]
  - Lip haemorrhage [None]
  - Renal failure [None]
  - Haemodialysis [None]
  - Adverse drug reaction [None]
  - Feeding disorder [None]
  - Oligodipsia [None]

NARRATIVE: CASE EVENT DATE: 20220926
